FAERS Safety Report 6045447-5 (Version None)
Quarter: 2009Q1

REPORT INFORMATION
  Report Type: 
  Country: None (occurrence: None)
  Receive Date: 20090121
  Receipt Date: 20090109
  Transmission Date: 20090719
  Serious: Yes (Other)
  Sender: FDA-Public Use
  Company Number: FR-PFIZER INC-2009156816

PATIENT

DRUGS (2)
  1. FLUCONAZOLE [Suspect]
  2. ANTICOAGULANTS [Interacting]

REACTIONS (2)
  - DRUG INTERACTION [None]
  - HAEMORRHAGE URINARY TRACT [None]
